FAERS Safety Report 8361867 (Version 4)
Quarter: 2013Q2

REPORT INFORMATION
  Report Type: Spontaneous
  Country: US (occurrence: US)
  Receive Date: 20111221
  Receipt Date: 20121227
  Transmission Date: 20140414
  Serious: Yes (Death, Hospitalization)
  Sender: FDA-Public Use
  Company Number: PHEH2011US06242

PATIENT
  Sex: Male

DRUGS (1)
  1. EXJADE (*CGP 72670*) [Suspect]
     Indication: NEOPLASM
     Route: 048
     Dates: start: 20100326

REACTIONS (3)
  - MYELODYSPLASTIC SYNDROME [Fatal]
  - FEBRILE NEUTROPENIA [Fatal]
  - DRUG INEFFECTIVE [Unknown]
